FAERS Safety Report 8986102 (Version 1)
Quarter: 2012Q4

REPORT INFORMATION
  Report Type: Spontaneous
  Country: DK (occurrence: None)
  Receive Date: 20121004
  Receipt Date: 20121004
  Transmission Date: 20130627
  Serious: Yes (Death, Hospitalization)
  Sender: FDA-Public Use
  Company Number: 218927

PATIENT
  Age: 22 Year
  Sex: Female

DRUGS (5)
  1. INNOHEP (TINZAPARIN SODIUM) [Suspect]
     Indication: THROMBOLYSIS
  2. CIPROFLOXACIN (CIPROFLOXACIN) [Concomitant]
  3. METRONIDAZOLE (METRONIDAZOLE) [Concomitant]
  4. MEROPENEM (MEROPENEM) [Concomitant]
  5. OMEPRAZOLE (OMEPRAZOLE) [Concomitant]

REACTIONS (10)
  - Gastroduodenitis haemorrhagic [None]
  - Intestinal ischaemia [None]
  - Small intestinal obstruction [None]
  - Exposure during pregnancy [None]
  - Caesarean section [None]
  - Hepatic enzyme increased [None]
  - Blood creatinine increased [None]
  - Postoperative ileus [None]
  - Ascites [None]
  - Internal hernia [None]
